FAERS Safety Report 6252300-0 (Version None)
Quarter: 2009Q3

REPORT INFORMATION
  Report Type: 
  Country: None (occurrence: None)
  Receive Date: 20090701
  Receipt Date: 20050904
  Transmission Date: 20100115
  Serious: Yes (Hospitalization)
  Sender: FDA-Public Use
  Company Number: US-ROCHE-638786

PATIENT
  Sex: Female

DRUGS (4)
  1. ENFUVIRTIDE [Suspect]
     Route: 065
  2. APTIVUS [Concomitant]
     Indication: ANTIRETROVIRAL THERAPY
     Dates: start: 20050811, end: 20051003
  3. NORVIR [Concomitant]
     Indication: ANTIRETROVIRAL THERAPY
     Dates: start: 20050811, end: 20051003
  4. VIRAMUNE [Concomitant]
     Indication: ANTIRETROVIRAL THERAPY
     Dates: start: 20050811, end: 20051030

REACTIONS (1)
  - CHOLECYSTITIS [None]
